FAERS Safety Report 4864502-6 (Version None)
Quarter: 2005Q4

REPORT INFORMATION
  Report Type: 
  Country: None (occurrence: None)
  Receive Date: 20051222
  Receipt Date: 20051213
  Transmission Date: 20060501
  Serious: Yes (Hospitalization)
  Sender: FDA-Public Use
  Company Number: AU-ROCHE-428553

PATIENT
  Age: 84 Year
  Sex: Male

DRUGS (5)
  1. KETOROLAC TROMETHAMINE [Suspect]
     Indication: DRUG USE FOR UNKNOWN INDICATION
     Route: 065
     Dates: start: 20031123, end: 20031123
  2. ASPIRIN [Suspect]
     Dosage: START DATE REPORTED AS LONG TERM.
     Route: 048
     Dates: end: 20031211
  3. ENALAPRIL MALEATE [Suspect]
     Indication: DRUG USE FOR UNKNOWN INDICATION
     Dosage: START DATE REPORTED AS LONG TERM.
     Route: 048
     Dates: end: 20031211
  4. FLUOXETINE HYDROCHLORIDE [Suspect]
     Indication: DEPRESSION
     Route: 048
     Dates: start: 20031209, end: 20031211
  5. COLOXYL WITH SENNA [Concomitant]
     Route: 048

REACTIONS (3)
  - GASTRITIS EROSIVE [None]
  - GASTROINTESTINAL HAEMORRHAGE [None]
  - RENAL FAILURE ACUTE [None]
